FAERS Safety Report 16716202 (Version 4)
Quarter: 2021Q3

REPORT INFORMATION
  Report Type: Spontaneous
  Country: US (occurrence: US)
  Receive Date: 20190819
  Receipt Date: 20210928
  Transmission Date: 20211014
  Serious: Yes (Other)
  Sender: FDA-Public Use
  Company Number: US-PFIZER INC-2019354931

PATIENT
  Age: 54 Year
  Sex: Female
  Weight: 117.93 kg

DRUGS (1)
  1. PREGABALIN. [Suspect]
     Active Substance: PREGABALIN
     Indication: NEUROPATHY PERIPHERAL
     Dosage: UNK

REACTIONS (12)
  - Cerebrovascular accident [Unknown]
  - Illness [Unknown]
  - Visual impairment [Unknown]
  - Nausea [Unknown]
  - Sinus disorder [Unknown]
  - Drug hypersensitivity [Unknown]
  - Pruritus [Unknown]
  - Drug ineffective [Unknown]
  - Sluggishness [Unknown]
  - Pain [Unknown]
  - Abdominal discomfort [Unknown]
  - Dizziness [Unknown]
